FAERS Safety Report 10516311 (Version 2)
Quarter: 2014Q4

REPORT INFORMATION
  Report Type: Spontaneous
  Country: JP (occurrence: JP)
  Receive Date: 20141014
  Receipt Date: 20141105
  Transmission Date: 20150528
  Serious: Yes (Hospitalization)
  Sender: FDA-Public Use
  Company Number: JP-SA-2014SA140117

PATIENT
  Age: 91 Year
  Sex: Female

DRUGS (2)
  1. LEVOFLOXACIN. [Suspect]
     Active Substance: LEVOFLOXACIN
     Route: 048
     Dates: start: 20140416
  2. AMARYL [Suspect]
     Active Substance: GLIMEPIRIDE
     Indication: TYPE 2 DIABETES MELLITUS
     Route: 048
     Dates: end: 20140421

REACTIONS (4)
  - Drug interaction [Unknown]
  - Altered state of consciousness [Recovering/Resolving]
  - Hypoglycaemia [Recovering/Resolving]
  - Muscle spasticity [Unknown]

NARRATIVE: CASE EVENT DATE: 20140421
